FAERS Safety Report 5706303-2 (Version None)
Quarter: 2008Q2

REPORT INFORMATION
  Report Type: 
  Country: None (occurrence: None)
  Receive Date: 20080328
  Receipt Date: 20071120
  Transmission Date: 20081010
  Serious: Yes (Other)
  Sender: FDA-Public Use
  Company Number: US-WYE-H01412307

PATIENT
  Age: 77 Year
  Sex: Female
  Weight: 83.99 kg

DRUGS (6)
  1. ALAVERT [Suspect]
     Indication: NASOPHARYNGITIS
     Dosage: 1 TABLET 1X PER 1 DAY, ORAL
     Route: 048
     Dates: start: 20071117, end: 20071117
  2. ALAVERT [Suspect]
     Indication: SINUS CONGESTION
     Dosage: 1 TABLET 1X PER 1 DAY, ORAL
     Route: 048
     Dates: start: 20071117, end: 20071117
  3. ATENOLOL [Concomitant]
  4. LIPITOR [Concomitant]
  5. TRICOR [Concomitant]
  6. CALCIUM (CALCIUM) [Concomitant]

REACTIONS (1)
  - INSOMNIA [None]
